FAERS Safety Report 4802076-6 (Version None)
Quarter: 2005Q4

REPORT INFORMATION
  Report Type: 
  Country: None (occurrence: None)
  Receive Date: 20051011
  Receipt Date: 20050926
  Transmission Date: 20060501
  Serious: Yes (Other)
  Sender: FDA-Public Use
  Company Number: 2005133721

PATIENT
  Age: 57 Year
  Sex: Male

DRUGS (5)
  1. VIAGRA [Suspect]
     Indication: ILL-DEFINED DISORDER
     Dosage: 50 MG, ORAL
     Route: 048
     Dates: start: 20050801, end: 20050901
  2. ZOLOFT [Concomitant]
  3. ADDERALL 10 [Concomitant]
  4. FOLGARD (CYANOCOBALAMIN, FOLIC ACID, PYRIXDOXINE HYDROCHLORIDE) [Concomitant]
  5. ASPIRIN [Concomitant]

REACTIONS (5)
  - EYE PAIN [None]
  - OPTIC ISCHAEMIC NEUROPATHY [None]
  - PAPILLOEDEMA [None]
  - PUPILLARY REFLEX IMPAIRED [None]
  - VISUAL FIELD DEFECT [None]
